FAERS Safety Report 18708683 (Version 2)
Quarter: 2021Q1

REPORT INFORMATION
  Report Type: Report from Study
  Country: IT (occurrence: IT)
  Receive Date: 20210106
  Receipt Date: 20210312
  Transmission Date: 20210419
  Serious: Yes (Other)
  Sender: FDA-Public Use
  Company Number: IT-TEVA-2020-IT-1864851

PATIENT
  Age: 83 Year
  Sex: Male

DRUGS (6)
  1. PANTOPRAZOLE [Concomitant]
     Active Substance: PANTOPRAZOLE
     Dosage: 20 MG
  2. NORVASC [Suspect]
     Active Substance: AMLODIPINE BESYLATE
     Indication: HYPERTENSION
     Dosage: 2.5 MG
     Route: 048
     Dates: start: 20191008, end: 20201008
  3. CARDIRENE [Concomitant]
     Active Substance: ASPIRIN DL-LYSINE
     Dosage: 100 MG
  4. GLYCERYL TRINITRATE [Suspect]
     Active Substance: NITROGLYCERIN
     Indication: HYPERTENSION
     Dosage: 15 MG
     Route: 062
     Dates: start: 20191008, end: 20201008
  5. ATORVASTATIN [Concomitant]
     Active Substance: ATORVASTATIN
  6. SEQUACOR [Concomitant]
     Active Substance: BISOPROLOL
     Dosage: 10 UCI

REACTIONS (3)
  - Overdose [Recovering/Resolving]
  - Syncope [Recovering/Resolving]
  - Medication error [Recovering/Resolving]

NARRATIVE: CASE EVENT DATE: 20201008
